FAERS Safety Report 8544837-6 (Version None)
Quarter: 2012Q3

REPORT INFORMATION
  Report Type: 
  Country: None (occurrence: None)
  Receive Date: 20120727
  Receipt Date: 20090518
  Transmission Date: 20120928
  Serious: Yes (Other)
  Sender: FDA-Public Use
  Company Number: AU-ROCHE-1090724

PATIENT
  Sex: Male

DRUGS (3)
  1. FLUOROURACIL [Concomitant]
  2. IRINOTECAN HCL [Concomitant]
  3. AVASTIN [Suspect]
     Indication: COLORECTAL CANCER METASTATIC
     Dosage: LAST DOSE  ON 10/OCT/2009
     Dates: end: 20091223

REACTIONS (2)
  - PULMONARY EMBOLISM [None]
  - DISEASE PROGRESSION [None]
